FAERS Safety Report 8860958 (Version 1)
Quarter: 2012Q4

REPORT INFORMATION
  Report Type: 
  Country: US (occurrence: US)
  Receive Date: 20121025
  Receipt Date: 20121025
  Transmission Date: 20130627
  Serious: No
  Sender: FDA-Public Use
  Company Number: US-009507513-1210USA010962

PATIENT
  Sex: Male

DRUGS (4)
  1. REBETOL [Suspect]
     Indication: HEPATITIS C
     Dosage: UNK
     Route: 048
     Dates: start: 2010
  2. REBETOL [Suspect]
     Dosage: UNK
     Route: 048
     Dates: start: 20110526, end: 20111110
  3. PEGASYS [Concomitant]
     Indication: HEPATITIS C
     Dosage: UNK
     Dates: start: 2010
  4. PEGASYS [Concomitant]
     Dosage: UNK
     Route: 048
     Dates: start: 20110526, end: 20111110

REACTIONS (1)
  - Drug ineffective [Unknown]
